FAERS Safety Report 18212065 (Version 1)
Quarter: 2020Q3

REPORT INFORMATION
  Report Type: Spontaneous
  Country: US (occurrence: US)
  Receive Date: 20200831
  Receipt Date: 20200831
  Transmission Date: 20201103
  Serious: Yes (Death, Other)
  Sender: FDA-Public Use
  Company Number: US-AUROBINDO-AUR-APL-2020-045573

PATIENT
  Age: 10 Year
  Sex: Female
  Weight: 44.5 kg

DRUGS (3)
  1. ACETAMINOPHEN AND CODEINE [Suspect]
     Active Substance: ACETAMINOPHEN\CODEINE PHOSPHATE
     Indication: PAIN
     Dosage: UNK; AS NEEDED
     Route: 048
  2. MORPHINE [Suspect]
     Active Substance: MORPHINE
     Indication: PRODUCT USED FOR UNKNOWN INDICATION
     Dosage: UNK
     Route: 065
  3. DIAZEPAM. [Suspect]
     Active Substance: DIAZEPAM
     Indication: MUSCLE SPASMS
     Dosage: 24 MILLIGRAM, EVERY FOUR HOUR
     Route: 048

REACTIONS (4)
  - Drug interaction [Unknown]
  - Pulmonary oedema [Fatal]
  - Toxicity to various agents [Fatal]
  - Respiratory depression [Fatal]
